FAERS Safety Report 14898404 (Version 2)
Quarter: 2018Q2

REPORT INFORMATION
  Report Type: Spontaneous
  Country: US (occurrence: US)
  Receive Date: 20180515
  Receipt Date: 20180517
  Transmission Date: 20180711
  Serious: No
  Sender: FDA-Public Use
  Company Number: US-SA-2018SA087908

PATIENT
  Age: 8 Year
  Sex: Female

DRUGS (5)
  1. LANTUS SOLOSTAR [Suspect]
     Active Substance: INSULIN GLARGINE
     Indication: DIABETES MELLITUS
     Dosage: I DON^T KNOW IF I CAN SEE THIS 7F4759A 5/2020
     Route: 051
  2. SOLOSTAR [Suspect]
     Active Substance: DEVICE
     Indication: DIABETES MELLITUS
     Dosage: I DON^T KNOW IF I CAN SEE THIS 7F4759A 5/2020
  3. SOLOSTAR [Suspect]
     Active Substance: DEVICE
     Dosage: I DON^T KNOW IF I CAN SEE THIS 7F4759A 5/2020
  4. TOUJEO [Suspect]
     Active Substance: INSULIN GLARGINE
     Dosage: I DON^T KNOW IF I CAN SEE THIS 7F4759A 5/2020
     Route: 051
  5. LANTUS SOLOSTAR [Suspect]
     Active Substance: INSULIN GLARGINE
     Indication: DIABETES MELLITUS
     Dosage: I DON^T KNOW IF I CAN SEE THIS 7F4759A 5/2020
     Route: 051

REACTIONS (3)
  - Blood glucose increased [Unknown]
  - Anxiety [Unknown]
  - Agitation [Unknown]
